FAERS Safety Report 4946948-0 (Version None)
Quarter: 2006Q1

REPORT INFORMATION
  Report Type: 
  Country: None (occurrence: None)
  Receive Date: 20060313
  Receipt Date: 20060306
  Transmission Date: 20060701
  Serious: Yes (Hospitalization, Other)
  Sender: FDA-Public Use
  Company Number: 2006005166

PATIENT
  Sex: Female
  Weight: 92.5338 kg

DRUGS (18)
  1. NEURONTIN [Suspect]
     Indication: NEUROPATHY PERIPHERAL
     Dosage: 1200 MG (DAILY),
  2. DIOVAN HCT [Concomitant]
  3. IMDUR [Concomitant]
  4. COREG [Concomitant]
  5. PREVACID [Concomitant]
  6. EFFEXOR [Concomitant]
  7. GLUCOPHAGE XR (METFORMIN HYDROCHLORIDE) [Concomitant]
  8. CARDIZEM [Concomitant]
  9. THYROID TAB [Concomitant]
  10. FLEXERIL [Concomitant]
  11. OXYCODONE HCL [Concomitant]
  12. PROMETHAZINE [Concomitant]
  13. ASPIRIN [Concomitant]
  14. OXYGEN (OXYGEN) [Concomitant]
  15. MONTELUKAST (MONTELUKAST) [Concomitant]
  16. KLONOPIN [Concomitant]
  17. LORTAB [Concomitant]
  18. ALL OTHER THERAPEUTIC PRODUCTS (ALL OTHER THERAPEUTIC PRODUCTS) [Concomitant]

REACTIONS (18)
  - ANGINA PECTORIS [None]
  - ANKLE FRACTURE [None]
  - BLADDER DISORDER [None]
  - BLOOD PRESSURE FLUCTUATION [None]
  - BURNING SENSATION [None]
  - CONDITION AGGRAVATED [None]
  - CORONARY ARTERY DISEASE [None]
  - CORONARY ARTERY OCCLUSION [None]
  - CYSTITIS [None]
  - FALL [None]
  - HIP ARTHROPLASTY [None]
  - INCONTINENCE [None]
  - NEUROPATHY PERIPHERAL [None]
  - PALPITATIONS [None]
  - TENDON INJURY [None]
  - URINARY RETENTION [None]
  - VENTRICULAR EXTRASYSTOLES [None]
  - WOUND DEHISCENCE [None]
